FAERS Safety Report 8885810 (Version 1)
Quarter: 2012Q4

REPORT INFORMATION
  Report Type: 
  Country: JP (occurrence: JP)
  Receive Date: 20121105
  Receipt Date: 20121105
  Transmission Date: 20130627
  Serious: Yes (Hospitalization)
  Sender: FDA-Public Use
  Company Number: JP-ELI_LILLY_AND_COMPANY-JP201209006820

PATIENT
  Age: 85 Year
  Sex: Female

DRUGS (2)
  1. ZYPREXA [Suspect]
     Route: 048
  2. ALEVIATIN [Concomitant]

REACTIONS (1)
  - Compression fracture [Unknown]
